FAERS Safety Report 7136291-6 (Version None)
Quarter: 2010Q4

REPORT INFORMATION
  Report Type: 
  Country: None (occurrence: None)
  Receive Date: 20101206
  Receipt Date: 20101124
  Transmission Date: 20110411
  Serious: No
  Sender: FDA-Public Use
  Company Number: US-BIOGENIDEC-2010BI040910

PATIENT
  Age: 52 Year
  Sex: Female

DRUGS (4)
  1. TYSABRI [Suspect]
     Indication: MULTIPLE SCLEROSIS
     Route: 042
     Dates: start: 20091130
  2. CYMBALTA [Concomitant]
     Indication: DEPRESSION
  3. CARBAMAZEPINE [Concomitant]
     Indication: CONVULSION
  4. GABAPENTIN [Concomitant]
     Indication: CONVULSION

REACTIONS (5)
  - HERPES ZOSTER [None]
  - MEMORY IMPAIRMENT [None]
  - MUSCULOSKELETAL CHEST PAIN [None]
  - PAIN [None]
  - RASH [None]
